FAERS Safety Report 18131194 (Version 5)
Quarter: 2020Q4

REPORT INFORMATION
  Report Type: Spontaneous
  Country: GB (occurrence: GB)
  Receive Date: 20200810
  Receipt Date: 20201021
  Transmission Date: 20210113
  Serious: Yes (Hospitalization)
  Sender: FDA-Public Use
  Company Number: GB-NOVOPROD-725608

PATIENT
  Sex: Male

DRUGS (3)
  1. TRESIBA [Concomitant]
     Active Substance: INSULIN DEGLUDEC
     Indication: TYPE 1 DIABETES MELLITUS
     Dosage: 8 OR 9
     Route: 065
  2. FIASP [Suspect]
     Active Substance: INSULIN ASPART
     Dosage: UNK(CORRECTION DOSE)
     Route: 065
  3. FIASP [Suspect]
     Active Substance: INSULIN ASPART
     Indication: TYPE 1 DIABETES MELLITUS
     Dosage: 1.5-2
     Route: 065

REACTIONS (8)
  - Hyperglycaemia [Unknown]
  - Blood glucose fluctuation [Unknown]
  - Incorrect dose administered by device [Unknown]
  - Blood ketone body [Unknown]
  - Therapeutic product effect variable [Unknown]
  - Hypoglycaemia [Unknown]
  - Device defective [Unknown]
  - Device malfunction [Unknown]
